FAERS Safety Report 5731777-0 (Version None)
Quarter: 2008Q2

REPORT INFORMATION
  Report Type: 
  Country: None (occurrence: None)
  Receive Date: 20080506
  Receipt Date: 20080423
  Transmission Date: 20081010
  Serious: No
  Sender: FDA-Public Use
  Company Number: 000776

PATIENT

DRUGS (1)
  1. PLETAL [Suspect]

REACTIONS (1)
  - SHOCK [None]
